FAERS Safety Report 8576282-1 (Version None)
Quarter: 2012Q3

REPORT INFORMATION
  Report Type: 
  Country: None (occurrence: None)
  Receive Date: 20120807
  Receipt Date: 20120803
  Transmission Date: 20120928
  Serious: Yes (Hospitalization)
  Sender: FDA-Public Use
  Company Number: VE-ROCHE-1097947

PATIENT
  Sex: Male
  Weight: 80 kg

DRUGS (1)
  1. ACTEMRA [Suspect]
     Indication: RHEUMATOID ARTHRITIS
     Route: 041
     Dates: start: 20110614, end: 20120404

REACTIONS (3)
  - HYPERCHOLESTEROLAEMIA [None]
  - ANGINA PECTORIS [None]
  - HYPERTENSION [None]
